FAERS Safety Report 5104306-2 (Version None)
Quarter: 2006Q3

REPORT INFORMATION
  Report Type: 
  Country: None (occurrence: None)
  Receive Date: 20060912
  Receipt Date: 20060912
  Transmission Date: 20061208
  Serious: Yes (Hospitalization)
  Sender: FDA-Public Use
  Company Number: None

PATIENT
  Sex: Male

DRUGS (10)
  1. ENOXAPARIN    120 MG [Suspect]
     Indication: DEEP VEIN THROMBOSIS
     Dosage: 240 MG   DAILY   SQ
     Route: 058
     Dates: start: 20060123, end: 20060125
  2. WARFARIN     5 MG [Suspect]
     Indication: DEEP VEIN THROMBOSIS
     Dosage: 5 MG   DAILY   PO
     Route: 048
     Dates: start: 20060121, end: 20060125
  3. ALBUTEROL [Concomitant]
  4. ATENOLOL [Concomitant]
  5. CITALOPRAM [Concomitant]
  6. GLYBURIDE [Concomitant]
  7. ISOSORBIDE MONONITRATE [Concomitant]
  8. LISINOPRIL [Concomitant]
  9. SIMVASTATIN [Concomitant]
  10. TEMAZEPAM [Concomitant]

REACTIONS (1)
  - HAEMATOMA [None]
